FAERS Safety Report 8469504 (Version 2)
Quarter: 2012Q4

REPORT INFORMATION
  Report Type: 
  Country: US (occurrence: US)
  Receive Date: 20120321
  Receipt Date: 20121008
  Transmission Date: 20130627
  Serious: Yes (Other)
  Sender: FDA-Public Use
  Company Number: US-ASTELLAS-2012US002895

PATIENT
  Age: 43 Year
  Sex: Female

DRUGS (2)
  1. PROGRAF [Suspect]
     Indication: RENAL TRANSPLANT
     Dosage: 2 mg, bid
     Route: 048
     Dates: start: 20091106
  2. PROGRAF [Suspect]
     Dosage: 0.5 mg, bid
     Route: 048
     Dates: start: 20040107

REACTIONS (3)
  - Renal transplant [Unknown]
  - Vaginal haemorrhage [Not Recovered/Not Resolved]
  - Cyst rupture [Unknown]
